FAERS Safety Report 19866495 (Version 1)
Quarter: 2021Q3

REPORT INFORMATION
  Report Type: Report from Study
  Country: BR (occurrence: BR)
  Receive Date: 20210922
  Receipt Date: 20210922
  Transmission Date: 20211014
  Serious: Yes (Other)
  Sender: FDA-Public Use
  Company Number: NVSC2021BR164315

PATIENT
  Sex: Male
  Weight: 81 kg

DRUGS (6)
  1. NIMESULIDE [Concomitant]
     Active Substance: NIMESULIDE
     Indication: HEADACHE
     Dosage: UNK, PRN (8H TO 8H)
     Route: 048
     Dates: start: 20210903
  2. ADALIMUMAB [Suspect]
     Active Substance: ADALIMUMAB
     Indication: ANKYLOSING SPONDYLITIS
     Dosage: UNK
     Route: 065
  3. ADALIMUMAB [Suspect]
     Active Substance: ADALIMUMAB
     Dosage: 150 MG (EVERY 15 DAYS; STARTED ABOUT 5 YEASR AGO AND STOPPED ON BEGINNING OF 2021)
     Route: 058
  4. COSENTYX [Concomitant]
     Active Substance: SECUKINUMAB
     Dosage: UNK  (EVERY 15 DAYS)
     Route: 058
     Dates: start: 2021
  5. PARACETAMOL [Concomitant]
     Active Substance: ACETAMINOPHEN
     Indication: HEADACHE
     Dosage: 750 MG, 8H TO 8H, WHEN NECESSARY
     Route: 048
  6. COSENTYX [Concomitant]
     Active Substance: SECUKINUMAB
     Indication: ANKYLOSING SPONDYLITIS
     Dosage: UNK UNK, QW
     Route: 058
     Dates: start: 20210508

REACTIONS (8)
  - Limb discomfort [Recovering/Resolving]
  - Pain [Not Recovered/Not Resolved]
  - Asthenia [Not Recovered/Not Resolved]
  - Mobility decreased [Recovering/Resolving]
  - Neuritis [Unknown]
  - Herpes virus infection [Recovered/Resolved]
  - Scar [Recovered/Resolved]
  - Blister [Recovered/Resolved]
